FAERS Safety Report 13731523 (Version 2)
Quarter: 2017Q3

REPORT INFORMATION
  Report Type: Report from Study
  Country: PL (occurrence: PL)
  Receive Date: 20170707
  Receipt Date: 20170720
  Transmission Date: 20171127
  Serious: Yes (Other)
  Sender: FDA-Public Use
  Company Number: PL-EISAI MEDICAL RESEARCH-EC-2017-028851

PATIENT
  Age: 67 Year
  Sex: Male
  Weight: 96.7 kg

DRUGS (9)
  1. FINASTER (FINASTERIDE) [Concomitant]
     Route: 048
     Dates: start: 2014
  2. BETALOC ZOK [Concomitant]
     Active Substance: METOPROLOL SUCCINATE
     Route: 048
     Dates: start: 2008
  3. POLOCARD [Concomitant]
     Active Substance: ASPIRIN
     Route: 048
     Dates: start: 2008
  4. DIURED [Concomitant]
     Route: 048
     Dates: start: 2013
  5. AMLOZEK [Concomitant]
     Active Substance: AMLODIPINE BESYLATE
     Route: 048
     Dates: start: 2015
  6. LORCASERIN [Suspect]
     Active Substance: LORCASERIN HYDROCHLORIDE
     Indication: WEIGHT CONTROL
     Route: 048
     Dates: start: 20150528
  7. ZOCOR [Concomitant]
     Active Substance: SIMVASTATIN
     Route: 048
     Dates: start: 2008
  8. PIRAMIL [Concomitant]
     Active Substance: RAMIPRIL
     Route: 048
     Dates: start: 2008
  9. BAZETHAM RETARD [Concomitant]
     Route: 048
     Dates: start: 2014

REACTIONS (1)
  - Mitral valve incompetence [Recovering/Resolving]

NARRATIVE: CASE EVENT DATE: 20161020
